FAERS Safety Report 14661157 (Version 4)
Quarter: 2018Q4

REPORT INFORMATION
  Report Type: Spontaneous
  Country: PL (occurrence: PL)
  Receive Date: 20180320
  Receipt Date: 20181003
  Transmission Date: 20190204
  Serious: Yes (Death, Other)
  Sender: FDA-Public Use
  Company Number: PL-MYLANLABS-2018M1016808

PATIENT
  Age: 80 Year
  Sex: Male

DRUGS (3)
  1. ACICLOVIR [Suspect]
     Active Substance: ACYCLOVIR
     Indication: LIMBIC ENCEPHALITIS
     Dosage: UNK
     Route: 065
  2. DIAZEPAM. [Suspect]
     Active Substance: DIAZEPAM
     Indication: SEDATION
     Dosage: UNK
     Route: 065
  3. QUETIAPINE. [Suspect]
     Active Substance: QUETIAPINE
     Indication: SEDATION
     Dosage: UNK
     Route: 065

REACTIONS (2)
  - Cardiac arrest [Fatal]
  - Drug ineffective [Fatal]
